FAERS Safety Report 8978775 (Version 1)
Quarter: 2012Q4

REPORT INFORMATION
  Report Type: 
  Country: FR (occurrence: FR)
  Receive Date: 20121221
  Receipt Date: 20121221
  Transmission Date: 20130627
  Serious: Yes (Other)
  Sender: FDA-Public Use
  Company Number: FR-BIOGENIDEC-2012BI055668

PATIENT
  Age: 37 Year
  Sex: Female

DRUGS (3)
  1. TYSABRI [Suspect]
     Indication: MULTIPLE SCLEROSIS
     Route: 042
     Dates: start: 20120808
  2. LYRICA [Concomitant]
     Indication: NEURALGIA
  3. LYRICA [Concomitant]
     Indication: NEURALGIA

REACTIONS (2)
  - Epilepsy [Recovered/Resolved]
  - Progressive multifocal leukoencephalopathy [Recovered/Resolved]
